FAERS Safety Report 7142838-6 (Version None)
Quarter: 2010Q4

REPORT INFORMATION
  Report Type: 
  Country: None (occurrence: None)
  Receive Date: 20101207
  Receipt Date: 20101129
  Transmission Date: 20110411
  Serious: Yes (Other)
  Sender: FDA-Public Use
  Company Number: SE-PFIZER INC-SE-WYE-G06883510

PATIENT
  Age: 28 Year
  Sex: Male

DRUGS (2)
  1. EFFEXOR [Suspect]
     Indication: SOCIAL PHOBIA
     Dosage: 150 MG, 2X/DAY
     Dates: start: 20081201
  2. ALCOHOL [Interacting]
     Dosage: UNK

REACTIONS (7)
  - AMNESIA [None]
  - DRUG INTERACTION [None]
  - FACE CRUSHING [None]
  - LOWER LIMB FRACTURE [None]
  - MUSCLE GRAFT [None]
  - PERSONALITY CHANGE [None]
  - ROAD TRAFFIC ACCIDENT [None]
